FAERS Safety Report 17124100 (Version 1)
Quarter: 2019Q4

REPORT INFORMATION
  Report Type: Spontaneous
  Country: US (occurrence: US)
  Receive Date: 20191206
  Receipt Date: 20191206
  Transmission Date: 20200122
  Serious: No
  Sender: FDA-Public Use
  Company Number: US-AMNEAL PHARMACEUTICALS-2019AMN00282

PATIENT
  Sex: Female
  Weight: 68 kg

DRUGS (7)
  1. RANITIDINE. [Suspect]
     Active Substance: RANITIDINE
     Indication: DYSPEPSIA
     Dosage: 150 MG, 2X/DAY, TOOK FOR ONLY 2 WEEKS
     Route: 048
     Dates: start: 201710
  2. PRESERVISION AREDS 2 [Concomitant]
     Active Substance: MINERALS\VITAMINS
     Indication: MACULAR DEGENERATION
     Dosage: 2 A DAY, SOFTGELS, BEGAN TAKING 6 YEARS AGO
  3. DEXILANT [Concomitant]
     Active Substance: DEXLANSOPRAZOLE
     Indication: DYSPEPSIA
     Dosage: 60 MG DAILY, 1X/DAY
     Route: 048
     Dates: start: 20161107, end: 201711
  4. VITAMIN D [Concomitant]
     Active Substance: VITAMIN D NOS
     Indication: VITAMIN D DECREASED
     Dosage: 1 CAPSULE DAILY, 1X/DAY
     Route: 048
  5. ALLEGRA-D [Concomitant]
     Active Substance: FEXOFENADINE\PSEUDOEPHEDRINE
     Indication: HYPERSENSITIVITY
     Dosage: BEEN TAKING AT LEAST 10 YEARS
  6. OMEGA [Concomitant]
     Active Substance: CONVALLARIA MAJALIS\CRATAEGUS LAEVIGATA LEAF\PROXYPHYLLINE
     Indication: DRY EYE
     Dosage: , STARTED TAKING 6 YEARS AGO, PRN IS THE COMPANY SHE GETS IT FROM1 CAPSULES, 1X/DAY
  7. PEPCID [Concomitant]
     Active Substance: FAMOTIDINE
     Indication: DYSPEPSIA
     Dosage: 40 MG, 1X/DAY
     Dates: start: 201712, end: 20180425

REACTIONS (1)
  - Drug ineffective [Unknown]
